FAERS Safety Report 20913845 (Version 3)
Quarter: 2022Q3

REPORT INFORMATION
  Report Type: Report from Study
  Country: DE (occurrence: None)
  Receive Date: 20220604
  Receipt Date: 20220929
  Transmission Date: 20221027
  Serious: Yes (Hospitalization)
  Sender: FDA-Public Use
  Company Number: DE-ROCHE-3098689

PATIENT
  Age: 73 Year
  Sex: Female
  Weight: 54.6 kg

DRUGS (12)
  1. ATEZOLIZUMAB [Suspect]
     Active Substance: ATEZOLIZUMAB
     Indication: Squamous cell carcinoma of lung
     Dosage: ON 27/MAY/2021, START DATE OF MOST RECENT DOSE OF ATEZOLIZUMAB PRIOR TO AE/SAE
     Route: 042
     Dates: start: 20210304
  2. ATEZOLIZUMAB [Suspect]
     Active Substance: ATEZOLIZUMAB
     Indication: Squamous cell carcinoma of lung
     Dosage: DOSE LAST STUDY DRUG ADMIN PRIOR AE/SAE IS 1200 MG?ON 26/APR/2022. START DATE OF MOST RECENT DOSE OF
     Route: 041
     Dates: start: 20210816
  3. PACLITAXEL [Suspect]
     Active Substance: PACLITAXEL
     Indication: Squamous cell carcinoma of lung
     Dosage: DOSE LAST STUDY DRUG ADMIN PRIOR AE/SAE IS 110 MG?ON 10/JUN/2021, START DATE OF MOST RECENT DOSE OF
     Route: 042
     Dates: start: 20210304
  4. CARBOPLATIN [Suspect]
     Active Substance: CARBOPLATIN
     Indication: Squamous cell carcinoma of lung
     Dosage: DOSE LAST STUDY DRUG ADMIN PRIOR AE/SAE IS 353 MG?ON 27/MAY/2021, START DATE OF MOST RECENT DOSE OF
     Route: 042
     Dates: start: 20210304
  5. METOPROLOL [Concomitant]
     Active Substance: METOPROLOL
     Indication: Hypertension
     Dates: start: 2005
  6. CANDESARTAN CILEXETIL [Concomitant]
     Active Substance: CANDESARTAN CILEXETIL
     Indication: Hypertension
     Dates: start: 2005
  7. SIMVASTATIN [Concomitant]
     Active Substance: SIMVASTATIN
     Indication: Hyperlipidaemia
     Dates: start: 2005
  8. UNACID [Concomitant]
     Indication: Bronchitis
     Dates: start: 20210715
  9. VIGANTOLVIT [Concomitant]
     Indication: Prophylaxis
     Dates: start: 20211019
  10. NOVALGIN (METAMIZOLE SODIUM) [Concomitant]
     Active Substance: METAMIZOLE SODIUM
     Indication: Back pain
     Dates: start: 20220222
  11. OXAZEPAM [Concomitant]
     Active Substance: OXAZEPAM
     Indication: Sleep disorder
     Dates: start: 2010
  12. FUROSEMIDE [Concomitant]
     Active Substance: FUROSEMIDE
     Indication: Oedema peripheral
     Dates: start: 20220514, end: 20220523

REACTIONS (1)
  - Electrolyte imbalance [Recovered/Resolved]

NARRATIVE: CASE EVENT DATE: 20220514
